FAERS Safety Report 20481098 (Version 1)
Quarter: 2022Q1

REPORT INFORMATION
  Report Type: Spontaneous
  Country: US (occurrence: None)
  Receive Date: 20220216
  Receipt Date: 20220216
  Transmission Date: 20220423
  Serious: Yes (Death)
  Sender: FDA-Public Use
  Company Number: None

PATIENT
  Age: 72 Year
  Sex: Male

DRUGS (13)
  1. REVLIMID [Suspect]
     Active Substance: LENALIDOMIDE
     Indication: Myelodysplastic syndrome
     Dosage: OTHER FREQUENCY : DAILY M, W, F;?
     Route: 048
     Dates: start: 20220110, end: 20220124
  2. CINACALCET [Concomitant]
     Active Substance: CINACALCET
  3. FOLIC ACID [Concomitant]
     Active Substance: FOLIC ACID
  4. LEVOTHYROXINE [Concomitant]
     Active Substance: LEVOTHYROXINE
  5. METOPROLOL [Concomitant]
     Active Substance: METOPROLOL
  6. ALBUTEROL [Concomitant]
     Active Substance: ALBUTEROL
  7. ASPIRIN [Concomitant]
     Active Substance: ASPIRIN
  8. CALCITRIOL [Concomitant]
     Active Substance: CALCITRIOL
  9. LEVOFLOXACIN [Concomitant]
     Active Substance: LEVOFLOXACIN
  10. LIQUACEL [Concomitant]
  11. MINOXIDIL [Concomitant]
     Active Substance: MINOXIDIL
  12. MIRCERA [Concomitant]
     Active Substance: METHOXY POLYETHYLENE GLYCOL-EPOETIN BETA
  13. NIFEDIPINE [Concomitant]
     Active Substance: NIFEDIPINE

REACTIONS (1)
  - Death [None]

NARRATIVE: CASE EVENT DATE: 20220124
